FAERS Safety Report 19004599 (Version 1)
Quarter: 2021Q1

REPORT INFORMATION
  Report Type: Spontaneous
  Country: US (occurrence: US)
  Receive Date: 20210313
  Receipt Date: 20210313
  Transmission Date: 20210420
  Serious: No
  Sender: FDA-Public Use
  Company Number: US-VISTAPHARM, INC.-VER202008-001373

PATIENT
  Age: 80 Year
  Sex: Female

DRUGS (1)
  1. NYSTATIN ORAL  SUSPENSION, USP  100,000 UNITS PER ML CONTAINS ALCOHOL [Suspect]
     Active Substance: NYSTATIN
     Indication: PRODUCT USED FOR UNKNOWN INDICATION
     Dosage: UNKNOWN
     Route: 065

REACTIONS (1)
  - Alopecia [Unknown]
